FAERS Safety Report 11137678 (Version 1)
Quarter: 2015Q2

REPORT INFORMATION
  Report Type: Spontaneous
  Country: PL (occurrence: PL)
  Receive Date: 20150526
  Receipt Date: 20150526
  Transmission Date: 20150821
  Serious: Yes (Other)
  Sender: FDA-Public Use
  Company Number: PL-GE HEALTHCARE MEDICAL DIAGNOSTICS-OMPQ-PR-1505S-0840

PATIENT
  Age: 54 Year
  Sex: Male
  Weight: 92 kg

DRUGS (7)
  1. LEVETIRACETAM. [Concomitant]
     Active Substance: LEVETIRACETAM
  2. TRITTICO CR [Concomitant]
     Active Substance: TRAZODONE HYDROCHLORIDE
  3. OMNIPAQUE [Suspect]
     Active Substance: IOHEXOL
     Indication: SUBARACHNOID HAEMORRHAGE
     Route: 042
     Dates: start: 20150519, end: 20150519
  4. PIRAMIL [Concomitant]
  5. OMNIPAQUE [Suspect]
     Active Substance: IOHEXOL
     Indication: DIAGNOSTIC PROCEDURE
  6. SIMORION [Concomitant]
  7. BAZETHAM RETARD [Concomitant]

REACTIONS (2)
  - Erythema [Recovered/Resolved]
  - Blister [Recovered/Resolved]

NARRATIVE: CASE EVENT DATE: 20150519
